FAERS Safety Report 6695406-4 (Version None)
Quarter: 2010Q2

REPORT INFORMATION
  Report Type: 
  Country: None (occurrence: None)
  Receive Date: 20100422
  Receipt Date: 20100422
  Transmission Date: 20101027
  Serious: Yes (Life-Threatening, Other)
  Sender: FDA-Public Use
  Company Number: None

PATIENT
  Age: 72 Year
  Sex: Male
  Weight: 120.6568 kg

DRUGS (1)
  1. POTASSIUM CHLORIDE [Suspect]
     Indication: ADRENAL NEOPLASM
     Dosage: 11- 10 MEQ X 4 SEVERAL MONTHS

REACTIONS (2)
  - FAECES DISCOLOURED [None]
  - HAEMORRHAGE [None]
